FAERS Safety Report 16826707 (Version 2)
Quarter: 2019Q4

REPORT INFORMATION
  Report Type: Spontaneous
  Country: FR (occurrence: FR)
  Receive Date: 20190919
  Receipt Date: 20191120
  Transmission Date: 20200122
  Serious: Yes (Other)
  Sender: FDA-Public Use
  Company Number: FR-TEVA-2019-FR-1103930

PATIENT
  Age: 39 Year
  Sex: Female

DRUGS (6)
  1. VORICONAZOLE. [Concomitant]
     Active Substance: VORICONAZOLE
     Indication: ASPERGILLUS INFECTION
     Route: 065
  2. BENDAMUSTINE (GENERIC) [Suspect]
     Active Substance: BENDAMUSTINE
     Indication: CHRONIC LYMPHOCYTIC LEUKAEMIA
     Route: 042
  3. ISAVUCONAZOLE [Suspect]
     Active Substance: ISAVUCONAZOLE
     Indication: CEREBRAL ASPERGILLOSIS
     Route: 065
  4. ISAVUCONAZOLE [Suspect]
     Active Substance: ISAVUCONAZOLE
     Dosage: 200 MILLIGRAM DAILY;
     Route: 065
  5. ISAVUCONAZOLE [Suspect]
     Active Substance: ISAVUCONAZOLE
     Dosage: 300 MILLIGRAM DAILY;
     Route: 065
  6. CASPOFUNGIN                        /01527902/ [Concomitant]
     Indication: CEREBRAL ASPERGILLOSIS
     Dosage: 150 MILLIGRAM DAILY;
     Route: 065

REACTIONS (5)
  - Drug ineffective [Unknown]
  - Intentional overdose [Unknown]
  - Cerebral aspergillosis [Unknown]
  - Infection [Unknown]
  - Neutropenia [Recovered/Resolved]
